FAERS Safety Report 5669292-5 (Version None)
Quarter: 2008Q1

REPORT INFORMATION
  Report Type: 
  Country: None (occurrence: None)
  Receive Date: 20080313
  Receipt Date: 20080313
  Transmission Date: 20080703
  Serious: Yes (Hospitalization)
  Sender: FDA-Public Use
  Company Number: None

PATIENT
  Sex: Female
  Weight: 128.18 kg

DRUGS (15)
  1. FEMARA [Suspect]
     Dosage: 2.5 MG
  2. ACTOS [Concomitant]
  3. ASACOL [Concomitant]
  4. BENICAR [Concomitant]
  5. CALCIUM [Concomitant]
  6. CARDIZEM [Concomitant]
  7. CENTRUM SILVER [Concomitant]
  8. FISH OIL [Concomitant]
  9. HYDROCHLOROTHIAZIDE [Concomitant]
  10. LISINOPRIL [Concomitant]
  11. METFORMIN [Concomitant]
  12. SYNTHROID [Concomitant]
  13. TOPICORT CREAM [Concomitant]
  14. TOPROL [Concomitant]
  15. VYTORIN [Concomitant]

REACTIONS (1)
  - PSORIASIS [None]
